FAERS Safety Report 18478729 (Version 2)
Quarter: 2020Q4

REPORT INFORMATION
  Report Type: Other
  Country: RS (occurrence: RS)
  Receive Date: 20201109
  Receipt Date: 20201116
  Transmission Date: 20210114
  Serious: Yes (Other)
  Sender: FDA-Public Use
  Company Number: RS-ROCHE-2705977

PATIENT
  Age: 67 Year
  Sex: Male

DRUGS (8)
  1. PARACETAMOL [Concomitant]
     Active Substance: ACETAMINOPHEN
     Indication: PREMEDICATION
  2. OBINUTUZUMAB. [Suspect]
     Active Substance: OBINUTUZUMAB
     Dosage: ON SECOND DAY
     Route: 042
  3. LEMOD SOLU [Concomitant]
     Active Substance: METHYLPREDNISOLONE SODIUM SUCCINATE
     Indication: PREMEDICATION
     Route: 042
  4. PREDNISOLONE. [Concomitant]
     Active Substance: PREDNISOLONE
  5. PRONISON [Concomitant]
     Active Substance: PREDNISONE
  6. CHLORAMBUCIL [Suspect]
     Active Substance: CHLORAMBUCIL
     Indication: CHRONIC LYMPHOCYTIC LEUKAEMIA
     Route: 065
  7. PRESSING [Concomitant]
     Indication: PREMEDICATION
     Route: 048
  8. OBINUTUZUMAB. [Suspect]
     Active Substance: OBINUTUZUMAB
     Indication: CHRONIC LYMPHOCYTIC LEUKAEMIA
     Dosage: ON FIRST DAY
     Route: 042
     Dates: start: 20200827

REACTIONS (7)
  - Fatigue [Unknown]
  - Muscular weakness [Unknown]
  - White blood cell count decreased [Unknown]
  - Adrenal insufficiency [Unknown]
  - Myalgia [Unknown]
  - Tumour lysis syndrome [Unknown]
  - Inappropriate schedule of product administration [Unknown]
